FAERS Safety Report 4838548-8 (Version None)
Quarter: 2005Q4

REPORT INFORMATION
  Report Type: 
  Country: None (occurrence: None)
  Receive Date: 20051123
  Receipt Date: 20051118
  Transmission Date: 20060501
  Serious: Yes (Life-Threatening, Other)
  Sender: FDA-Public Use
  Company Number: 23984

PATIENT
  Age: 52 Year
  Sex: Female
  Weight: 104.3273 kg

DRUGS (6)
  1. NIASPAN [Suspect]
     Indication: BLOOD CHOLESTEROL INCREASED
     Dosage: 500 MG QHS PO
     Route: 048
     Dates: end: 20051117
  2. LOTREL [Concomitant]
  3. HYDROCHLOROTHIAZIDE [Concomitant]
  4. GLUCOPHAGE [Concomitant]
  5. ENTERIC-COATED BABY ASPIRIN [Concomitant]
  6. TUMS CALCIUM [Concomitant]

REACTIONS (3)
  - ANAPHYLACTIC REACTION [None]
  - PARAESTHESIA [None]
  - RESPIRATORY DISTRESS [None]
